FAERS Safety Report 25237480 (Version 4)
Quarter: 2025Q3

REPORT INFORMATION
  Report Type: Report from Study
  Country: CA (occurrence: CA)
  Receive Date: 20250425
  Receipt Date: 20250901
  Transmission Date: 20251021
  Serious: Yes (Hospitalization, Other)
  Sender: ABBVIE
  Company Number: CA-ABBVIE-6245234

PATIENT
  Age: 67 Year
  Sex: Female

DRUGS (2)
  1. RINVOQ [Suspect]
     Active Substance: UPADACITINIB
     Indication: Rheumatoid arthritis
     Dosage: DOSE STRENGTH:15 MILLIGRAM
     Route: 048
     Dates: start: 20220530, end: 20250523
  2. RINVOQ [Suspect]
     Active Substance: UPADACITINIB
     Indication: Rheumatoid arthritis
     Route: 048
     Dates: start: 202505

REACTIONS (7)
  - Large intestine perforation [Recovering/Resolving]
  - Diverticulitis [Recovered/Resolved]
  - Intestinal perforation [Unknown]
  - Gastrointestinal wall thinning [Unknown]
  - Intestinal stenosis [Recovering/Resolving]
  - Gastrointestinal disorder [Recovering/Resolving]
  - Pain in extremity [Recovering/Resolving]

NARRATIVE: CASE EVENT DATE: 20250401
